FAERS Safety Report 7688453-7 (Version None)
Quarter: 2011Q3

REPORT INFORMATION
  Report Type: 
  Country: None (occurrence: None)
  Receive Date: 20110817
  Receipt Date: 20110809
  Transmission Date: 20111222
  Serious: Yes (Other)
  Sender: FDA-Public Use
  Company Number: GB-ROCHE-796289

PATIENT
  Sex: Female

DRUGS (1)
  1. TRASTUZUMAB [Suspect]
     Route: 065

REACTIONS (6)
  - HEART RATE INCREASED [None]
  - TREMOR [None]
  - BLOOD PRESSURE INCREASED [None]
  - MALAISE [None]
  - HOT FLUSH [None]
  - PYREXIA [None]
